FAERS Safety Report 11750558 (Version 1)
Quarter: 2015Q4

REPORT INFORMATION
  Report Type: Report from Study
  Country: US (occurrence: US)
  Receive Date: 20151118
  Receipt Date: 20151118
  Transmission Date: 20160304
  Serious: Yes (Hospitalization, Other)
  Sender: FDA-Public Use
  Company Number: US-GILEAD-2015-0170123

PATIENT
  Age: 72 Year
  Sex: Female

DRUGS (12)
  1. IDELALISIB [Suspect]
     Active Substance: IDELALISIB
     Dosage: 100 MG, BID
     Route: 048
     Dates: start: 20151002
  2. LOVENOX [Concomitant]
     Active Substance: ENOXAPARIN SODIUM
     Indication: THROMBOSIS PROPHYLAXIS
  3. IDELALISIB [Suspect]
     Active Substance: IDELALISIB
     Indication: CHRONIC LYMPHOCYTIC LEUKAEMIA
     Dosage: 150 MG, UNK
     Route: 048
     Dates: start: 20150508
  4. MULTIVITAMIN                       /00097801/ [Concomitant]
     Active Substance: VITAMINS
     Route: 048
  5. BIOTIN [Concomitant]
     Active Substance: BIOTIN
     Dosage: 5 MG, QD
  6. IDELALISIB [Suspect]
     Active Substance: IDELALISIB
     Indication: B-CELL SMALL LYMPHOCYTIC LYMPHOMA
     Dosage: 150 MG, BID
     Route: 048
     Dates: start: 201506, end: 20150918
  7. ASPIRIN                            /00002701/ [Concomitant]
     Active Substance: ASPIRIN
     Dosage: 81 MG, QD
  8. RITUXIMAB [Suspect]
     Active Substance: RITUXIMAB
     Indication: CHRONIC LYMPHOCYTIC LEUKAEMIA
  9. SYNTHROID [Concomitant]
     Active Substance: LEVOTHYROXINE SODIUM
     Dosage: 0.075 MG, UNK
     Route: 048
  10. PROCTOZONE HC [Concomitant]
     Active Substance: HYDROCORTISONE
     Dosage: 2.5 %, PRN
     Route: 054
  11. CELEXA [Concomitant]
     Active Substance: CITALOPRAM HYDROBROMIDE
     Dosage: 20 MG, QD
  12. COQ [Concomitant]
     Dosage: 200 MG, UNK

REACTIONS (16)
  - Decreased appetite [Unknown]
  - Weight decreased [Recovered/Resolved]
  - Electrolyte imbalance [Unknown]
  - Asthenia [Unknown]
  - Lymphadenopathy [Unknown]
  - Peripheral swelling [Unknown]
  - Acute kidney injury [Unknown]
  - Diarrhoea [Not Recovered/Not Resolved]
  - Fatigue [Unknown]
  - Abdominal pain [Not Recovered/Not Resolved]
  - Hypovolaemia [Unknown]
  - Hypercalcaemia [Unknown]
  - Thrombocytopenia [Unknown]
  - Pain in extremity [Unknown]
  - Dehydration [Unknown]
  - Nausea [Not Recovered/Not Resolved]

NARRATIVE: CASE EVENT DATE: 2015
